FAERS Safety Report 5863882-2 (Version None)
Quarter: 2008Q3

REPORT INFORMATION
  Report Type: 
  Country: None (occurrence: None)
  Receive Date: 20080829
  Receipt Date: 20080818
  Transmission Date: 20090109
  Serious: Yes (Hospitalization)
  Sender: FDA-Public Use
  Company Number: US-RANBAXY-2008RR-16846

PATIENT

DRUGS (2)
  1. DOXYCYCLINE HCL [Suspect]
     Indication: ACNE
     Route: 048
  2. PREDNISOLONE [Concomitant]
     Dosage: 40 MG, QD

REACTIONS (1)
  - DRUG RASH WITH EOSINOPHILIA AND SYSTEMIC SYMPTOMS [None]
